FAERS Safety Report 12502258 (Version 11)
Quarter: 2018Q3

REPORT INFORMATION
  Report Type: Report from Study
  Country: PA (occurrence: PA)
  Receive Date: 20160627
  Receipt Date: 20180808
  Transmission Date: 20181010
  Serious: Yes (Hospitalization, Other)
  Sender: FDA-Public Use
  Company Number: PHHY2015PA097968

PATIENT
  Age: 68 Year
  Sex: Female
  Weight: 58.5 kg

DRUGS (5)
  1. SANDOSTATIN LAR DEPOT [Suspect]
     Active Substance: OCTREOTIDE ACETATE
     Dosage: UNK, QMO
     Route: 030
  2. SANDOSTATIN LAR DEPOT [Suspect]
     Active Substance: OCTREOTIDE ACETATE
     Indication: CARCINOID SYNDROME
     Dosage: 20 MG (1 DF OF 20 MG), QMO
     Route: 030
     Dates: start: 201008
  3. SANDOSTATIN LAR DEPOT [Suspect]
     Active Substance: OCTREOTIDE ACETATE
     Dosage: 40 MG (2 DF OF 20 MG), QMO
     Route: 030
  4. AFINITOR [Suspect]
     Active Substance: EVEROLIMUS
     Indication: PRODUCT USED FOR UNKNOWN INDICATION
     Dosage: UNK
     Route: 065
     Dates: start: 20170623
  5. SANDOSTATIN LAR DEPOT [Suspect]
     Active Substance: OCTREOTIDE ACETATE
     Dosage: UNK, Q8H
     Route: 058

REACTIONS (22)
  - Carcinoid crisis [Recovering/Resolving]
  - Flushing [Recovered/Resolved]
  - Headache [Recovering/Resolving]
  - Diarrhoea [Recovered/Resolved]
  - Abdominal pain upper [Unknown]
  - Feeling hot [Not Recovered/Not Resolved]
  - Muscle fatigue [Unknown]
  - Dyspnoea [Unknown]
  - Flushing [Recovering/Resolving]
  - Trance [Unknown]
  - Inappropriate schedule of drug administration [Unknown]
  - Vomiting [Recovered/Resolved]
  - Tachycardia [Unknown]
  - Inflammation [Unknown]
  - Palpitations [Recovering/Resolving]
  - Diarrhoea [Recovering/Resolving]
  - Vomiting [Recovering/Resolving]
  - Aphonia [Recovering/Resolving]
  - Weight decreased [Unknown]
  - Malaise [Recovering/Resolving]
  - Incorrect route of drug administration [Unknown]
  - Erythema [Not Recovered/Not Resolved]

NARRATIVE: CASE EVENT DATE: 20151120
